FAERS Safety Report 15888706 (Version 2)
Quarter: 2019Q1

REPORT INFORMATION
  Report Type: Spontaneous
  Country: IL (occurrence: IL)
  Receive Date: 20190130
  Receipt Date: 20190218
  Transmission Date: 20190417
  Serious: Yes (Other)
  Sender: FDA-Public Use
  Company Number: IL-TEVA-2010R0806052

PATIENT
  Age: 58 Year
  Sex: Male

DRUGS (1)
  1. NAPROXEN. [Suspect]
     Active Substance: NAPROXEN
     Indication: OSTEOARTHRITIS
     Route: 048

REACTIONS (3)
  - Hypersensitivity vasculitis [Unknown]
  - Vasculitis necrotising [Unknown]
  - Gastrointestinal haemorrhage [Unknown]
